FAERS Safety Report 16842182 (Version 2)
Quarter: 2019Q3

REPORT INFORMATION
  Report Type: Spontaneous
  Country: FR (occurrence: FR)
  Receive Date: 20190923
  Receipt Date: 20190927
  Transmission Date: 20191005
  Serious: Yes (Death, Other)
  Sender: FDA-Public Use
  Company Number: FR-009507513-1909FRA008621

PATIENT
  Age: 18 Year
  Sex: Female
  Weight: 45.5 kg

DRUGS (8)
  1. DAPTOMYCIN. [Suspect]
     Active Substance: DAPTOMYCIN
     Indication: PYREXIA
     Dosage: 500 MILLIGRAM, QD
     Route: 042
     Dates: start: 20171225, end: 20171227
  2. SPIRONOLACTONE. [Suspect]
     Active Substance: SPIRONOLACTONE
     Indication: ASCITES
     Dosage: 200 MILLIGRAM, QD
     Route: 048
     Dates: start: 20171223, end: 20171227
  3. MEROPENEM. [Suspect]
     Active Substance: MEROPENEM
     Indication: PYREXIA
     Dosage: 3 GRAM, QD
     Route: 042
     Dates: start: 20171206, end: 20171227
  4. FUROSEMIDE. [Suspect]
     Active Substance: FUROSEMIDE
     Indication: ASCITES
     Dosage: 120 MILLIGRAM, QD
     Route: 048
     Dates: start: 20171127, end: 20171227
  5. ACYCLOVIR. [Suspect]
     Active Substance: ACYCLOVIR
     Indication: PYREXIA
     Dosage: 750 MILLIGRAM, QD
     Route: 042
     Dates: start: 20171217, end: 20171227
  6. DEFITELIO [Suspect]
     Active Substance: DEFIBROTIDE SODIUM
     Indication: VENOOCCLUSIVE DISEASE
     Dosage: 22 MILLIGRAM/KILOGRAM, QD
     Route: 042
     Dates: start: 20171124, end: 20171226
  7. AMPHOTERICIN B. [Suspect]
     Active Substance: AMPHOTERICIN B
     Indication: PYREXIA
     Dosage: 150 MILLIGRAM, QD
     Route: 065
     Dates: start: 20171226, end: 20171227
  8. ESOMEPRAZOLE. [Suspect]
     Active Substance: ESOMEPRAZOLE MAGNESIUM
     Indication: GASTROOESOPHAGEAL REFLUX PROPHYLAXIS
     Dosage: 20 MILLIGRAM, QD
     Route: 048
     Dates: start: 20171221, end: 20171227

REACTIONS (4)
  - Haemorrhagic disorder [Fatal]
  - Multiple organ dysfunction syndrome [Fatal]
  - Intentional product use issue [Unknown]
  - Off label use [Unknown]

NARRATIVE: CASE EVENT DATE: 20171124
